FAERS Safety Report 6553492-6 (Version None)
Quarter: 2010Q1

REPORT INFORMATION
  Report Type: 
  Country: None (occurrence: None)
  Receive Date: 20100122
  Receipt Date: 20100111
  Transmission Date: 20100710
  Serious: Yes (Death, Hospitalization)
  Sender: FDA-Public Use
  Company Number: APP201000038

PATIENT
  Age: 74 Year
  Sex: Female

DRUGS (4)
  1. HEPARIN SODIUM INJECTION [Suspect]
     Indication: HAEMODIALYSIS
     Dates: start: 20070919
  2. HEPARIN SODIUM INJECTION [Suspect]
  3. HEPARIN SODIUM INJECTION [Suspect]
  4. HEPARIN SODIUM INJECTION [Suspect]

REACTIONS (8)
  - ATRIAL FIBRILLATION [None]
  - BREAST MASS [None]
  - CELLULITIS [None]
  - MYOCARDIAL INFARCTION [None]
  - POSTOPERATIVE WOUND INFECTION [None]
  - REFUSAL OF TREATMENT BY PATIENT [None]
  - URINARY TRACT INFECTION [None]
  - WOUND COMPLICATION [None]
